FAERS Safety Report 24456743 (Version 1)
Quarter: 2024Q4

REPORT INFORMATION
  Report Type: Spontaneous
  Country: CN (occurrence: CN)
  Receive Date: 20241017
  Receipt Date: 20241017
  Transmission Date: 20250115
  Serious: Yes (Hospitalization, Other)
  Sender: ORGANON
  Company Number: CN-ORGANON-O2410CHN001112

PATIENT
  Age: 41 Year
  Sex: Female
  Weight: 65.6 kg

DRUGS (3)
  1. ORGALUTRAN [Suspect]
     Active Substance: GANIRELIX ACETATE
     Indication: Ovulation induction
     Dosage: SUBCUTANEOUS INJECTION, 0.25MG, QD||
     Route: 058
     Dates: start: 20240906, end: 20240911
  2. CHORIOGONADOTROPIN ALFA [Suspect]
     Active Substance: CHORIOGONADOTROPIN ALFA
     Indication: Ovulation induction
     Dosage: SUBCUTANEOUS INJECTION, 250UG, QD||
     Route: 058
     Dates: start: 20240911, end: 20240911
  3. FOLLITROPIN BETA [Suspect]
     Active Substance: FOLLITROPIN BETA
     Indication: Ovulation induction
     Dosage: SUBCUTANEOUS INJECTION, 300IU, QD||
     Route: 058
     Dates: start: 20240902, end: 20240910

REACTIONS (6)
  - Ovarian hyperstimulation syndrome [Recovering/Resolving]
  - Ascites [Unknown]
  - Pelvic fluid collection [Unknown]
  - Pleural effusion [Unknown]
  - Abdominal distension [Recovered/Resolved]
  - Decreased appetite [Recovered/Resolved]

NARRATIVE: CASE EVENT DATE: 20240929
